FAERS Safety Report 23374858 (Version 1)
Quarter: 2024Q1

REPORT INFORMATION
  Report Type: Spontaneous
  Country: FR (occurrence: FR)
  Receive Date: 20240106
  Receipt Date: 20240106
  Transmission Date: 20240409
  Serious: Yes (Hospitalization)
  Sender: FDA-Public Use
  Company Number: FR-AFSSAPS-TO2023002240

PATIENT
  Age: 77 Year
  Sex: Female

DRUGS (2)
  1. CARBOPLATIN [Suspect]
     Active Substance: CARBOPLATIN
     Indication: Pleural neoplasm
     Dosage: NR
     Route: 042
     Dates: start: 202210, end: 202301
  2. ALIMTA [Suspect]
     Active Substance: PEMETREXED DISODIUM
     Indication: Pleural neoplasm
     Dosage: NR
     Route: 042
     Dates: start: 202210, end: 202301

REACTIONS (1)
  - Nephropathy [Not Recovered/Not Resolved]

NARRATIVE: CASE EVENT DATE: 20230501
